FAERS Safety Report 4477308-7 (Version None)
Quarter: 2004Q3

REPORT INFORMATION
  Report Type: 
  Country: None (occurrence: None)
  Receive Date: 20040923
  Receipt Date: 20040616
  Transmission Date: 20050211
  Serious: No
  Sender: FDA-Public Use
  Company Number: USA040670369

PATIENT
  Age: 67 Year
  Sex: Female

DRUGS (3)
  1. FORTEO [Suspect]
     Indication: OSTEOPOROSIS
     Dosage: 20 UG DAY
     Dates: start: 20040614
  2. THYROID TAB [Concomitant]
  3. CALCIUM [Concomitant]

REACTIONS (3)
  - EYE DISORDER [None]
  - FATIGUE [None]
  - SLEEP DISORDER [None]
